FAERS Safety Report 9867244 (Version 2)
Quarter: 2014Q1

REPORT INFORMATION
  Report Type: Spontaneous
  Country: GB (occurrence: GB)
  Receive Date: 20140204
  Receipt Date: 20140210
  Transmission Date: 20141002
  Serious: Yes (Other)
  Sender: FDA-Public Use
  Company Number: GB-TEVA-460029ISR

PATIENT
  Age: 62 Year
  Sex: Male
  Weight: 100 kg

DRUGS (7)
  1. INDAPAMIDE [Suspect]
     Indication: HYPERTENSION
     Route: 048
  2. FUROSEMIDE [Interacting]
     Indication: HYPERTENSION
  3. AMLODIPINE [Concomitant]
     Indication: HYPERTENSION
     Route: 048
  4. LANSOPRAZOLE [Concomitant]
  5. LISINOPRIL [Concomitant]
  6. BISOPROLOL FUMARATE [Concomitant]
  7. PARACETAMOL [Concomitant]

REACTIONS (5)
  - Dizziness [Recovering/Resolving]
  - Labelled drug-drug interaction medication error [Unknown]
  - Malaise [Recovering/Resolving]
  - Hypertension [Recovering/Resolving]
  - Drug interaction [Unknown]
